FAERS Safety Report 19328900 (Version 1)
Quarter: 2021Q2

REPORT INFORMATION
  Report Type: Spontaneous
  Country: CA (occurrence: CA)
  Receive Date: 20210528
  Receipt Date: 20210528
  Transmission Date: 20210717
  Serious: Yes (Other)
  Sender: FDA-Public Use
  Company Number: CA-ASTELLAS-2021US019006

PATIENT
  Age: 21 Year
  Sex: Female

DRUGS (6)
  1. LOPINAVIR;RITONAVIR [Interacting]
     Active Substance: LOPINAVIR\RITONAVIR
     Indication: RETROVIRAL INFECTION
     Dosage: 800/200 MG, UNKNOWN FREQ.
     Route: 065
  2. TACROLIMUS. [Suspect]
     Active Substance: TACROLIMUS
     Indication: LIVER TRANSPLANT
     Dosage: UNK UNK, UNKNOWN FREQ.
     Route: 065
  3. MYCOPHENOLATE MOFETIL. [Concomitant]
     Active Substance: MYCOPHENOLATE MOFETIL
     Route: 065
  4. MYCOPHENOLATE MOFETIL. [Concomitant]
     Active Substance: MYCOPHENOLATE MOFETIL
     Indication: LIVER TRANSPLANT
     Dosage: UNK UNK, UNKNOWN FREQ.
     Route: 065
  5. TACROLIMUS. [Interacting]
     Active Substance: TACROLIMUS
     Dosage: UNK UNK, UNKNOWN FREQ.
     Route: 065
  6. TACROLIMUS. [Interacting]
     Active Substance: TACROLIMUS
     Dosage: 0.5 MG, ONCE WEEKLY
     Route: 065

REACTIONS (8)
  - Condition aggravated [Not Recovered/Not Resolved]
  - Drug interaction [Unknown]
  - Primary biliary cholangitis [Not Recovered/Not Resolved]
  - Immunosuppressant drug level [Recovered/Resolved]
  - Retroviral infection [Recovered/Resolved]
  - Diffuse large B-cell lymphoma [Unknown]
  - Epstein-Barr virus infection [Recovered/Resolved]
  - Post transplant lymphoproliferative disorder [Unknown]
